FAERS Safety Report 12854785 (Version 1)
Quarter: 2016Q4

REPORT INFORMATION
  Report Type: Spontaneous
  Country: PE (occurrence: PE)
  Receive Date: 20161017
  Receipt Date: 20161017
  Transmission Date: 20170207
  Serious: Yes (Death)
  Sender: FDA-Public Use
  Company Number: PE-NOVOPROD-513843

PATIENT
  Age: 83 Year
  Sex: Female
  Weight: 92 kg

DRUGS (1)
  1. LEVEMIR [Suspect]
     Active Substance: INSULIN DETEMIR
     Indication: DIABETES MELLITUS
     Dosage: 13 IU, QD
     Route: 058

REACTIONS (1)
  - Pancreatic carcinoma [Fatal]
